FAERS Safety Report 8945324 (Version 3)
Quarter: 2013Q3

REPORT INFORMATION
  Report Type: Report from Study
  Country: JP (occurrence: JP)
  Receive Date: 20121205
  Receipt Date: 20130701
  Transmission Date: 20140515
  Serious: Yes (Other)
  Sender: FDA-Public Use
  Company Number: JP-009507513-1212JPN000655

PATIENT
  Age: 71 Year
  Sex: Female
  Weight: 69 kg

DRUGS (10)
  1. PEGINTRON [Suspect]
     Indication: CHRONIC HEPATITIS C
     Dosage: 1.5 MICROGRAM PER KILOGRAM, QW
     Route: 058
     Dates: start: 20120820
  2. REBETOL [Suspect]
     Indication: CHRONIC HEPATITIS C
     Dosage: 800 MG, QD
     Route: 048
     Dates: start: 20120820, end: 20121008
  3. REBETOL [Suspect]
     Dosage: 400 MG, QD
     Route: 048
     Dates: start: 20121009, end: 20121015
  4. REBETOL [Suspect]
     Dosage: 400 MG, QD
     Route: 048
     Dates: start: 20130104
  5. TELAVIC [Suspect]
     Indication: CHRONIC HEPATITIS C
     Dosage: 2250 MG, QD
     Route: 048
     Dates: start: 20120820, end: 20121025
  6. DEPAS [Concomitant]
     Indication: PROPHYLAXIS
     Dosage: 0.5 MG, QD
     Route: 048
  7. MYSER (DIFLUPREDNATE) [Concomitant]
     Indication: PROPHYLAXIS
     Dosage: UNK
     Route: 061
     Dates: start: 20120827
  8. CALONAL [Concomitant]
     Indication: PROPHYLAXIS
     Dosage: 200 MG/DAY, PRN
     Route: 048
     Dates: start: 20120820
  9. CALONAL [Concomitant]
     Dosage: 400 MG, PRN
     Route: 048
  10. [THERAPY UNSPECIFIED] [Concomitant]
     Indication: ANAEMIA
     Dosage: 2 DF, QD (TWO UNITS/ DAY)
     Route: 042
     Dates: start: 20121031, end: 20121031

REACTIONS (1)
  - Anaemia [Recovering/Resolving]
